FAERS Safety Report 6183660-7 (Version None)
Quarter: 2009Q2

REPORT INFORMATION
  Report Type: 
  Country: None (occurrence: None)
  Receive Date: 20090508
  Receipt Date: 20090430
  Transmission Date: 20091009
  Serious: Yes (Hospitalization)
  Sender: FDA-Public Use
  Company Number: JP-JNJFOC-20090501000

PATIENT
  Sex: Male

DRUGS (8)
  1. TOPINA [Suspect]
     Dosage: 200.0 MG X 2 PER DAY
     Route: 048
  2. TOPINA [Suspect]
     Dosage: 150.0 MG X 2 PER DAY
     Route: 048
  3. TOPINA [Suspect]
     Dosage: 100.0 MG X 2 PER DAY
     Route: 048
  4. TOPINA [Suspect]
     Indication: EPILEPSY
     Dosage: 50.0 MG X 2 PER DAY
     Route: 048
  5. BENZALIN [Concomitant]
     Route: 048
  6. SELENICA-R [Concomitant]
     Route: 048
  7. EXCEGRAN [Concomitant]
     Route: 048
  8. EXCEGRAN [Concomitant]
     Route: 048

REACTIONS (7)
  - ASPARTATE AMINOTRANSFERASE INCREASED [None]
  - BLOOD CREATINE PHOSPHOKINASE INCREASED [None]
  - BLOOD LACTATE DEHYDROGENASE INCREASED [None]
  - BLOOD UREA INCREASED [None]
  - NEUTROPHIL COUNT INCREASED [None]
  - URINARY TRACT INFECTION [None]
  - WHITE BLOOD CELL COUNT INCREASED [None]
